FAERS Safety Report 7384402-X (Version None)
Quarter: 2011Q1

REPORT INFORMATION
  Report Type: 
  Country: None (occurrence: None)
  Receive Date: 20110330
  Receipt Date: 20101021
  Transmission Date: 20110831
  Serious: Yes (Hospitalization)
  Sender: FDA-Public Use
  Company Number: US-BAYER-200943276NA

PATIENT
  Sex: Female
  Weight: 76.364 kg

DRUGS (5)
  1. YASMIN [Suspect]
     Indication: PRODUCT USED FOR UNKNOWN INDICATION
     Dates: start: 20050101, end: 20060101
  2. POTASSIUM CHLORIDE [Concomitant]
     Dosage: 20 MEQ, QD
     Route: 048
     Dates: start: 20060326
  3. FOLIC ACID [Concomitant]
     Dosage: UNK
     Dates: start: 20060327
  4. ZOFRAN [Concomitant]
     Dosage: 4 MG, UNK
     Route: 042
     Dates: start: 20060326
  5. ANTIVERT [Concomitant]
     Dosage: 25 MG, BID
     Route: 048
     Dates: start: 20060326

REACTIONS (4)
  - HYPERCOAGULATION [None]
  - CEREBROVASCULAR ACCIDENT [None]
  - THROMBOSIS [None]
  - ISCHAEMIC STROKE [None]
